FAERS Safety Report 19766490 (Version 5)
Quarter: 2022Q1

REPORT INFORMATION
  Report Type: Spontaneous
  Country: US (occurrence: US)
  Receive Date: 20210831
  Receipt Date: 20220309
  Transmission Date: 20220423
  Serious: No
  Sender: FDA-Public Use
  Company Number: US-SANOFI-00740445

PATIENT
  Age: 66 Year
  Sex: Female

DRUGS (2)
  1. TOUJEO MAX [Suspect]
     Active Substance: INSULIN GLARGINE
     Indication: Type 2 diabetes mellitus
     Dosage: 100 IU, QD
     Route: 058
     Dates: start: 201902
  2. TOUJEO MAX [Suspect]
     Active Substance: INSULIN GLARGINE
     Dosage: 120 UNK

REACTIONS (4)
  - COVID-19 [Unknown]
  - Blood glucose increased [Unknown]
  - Device issue [Unknown]
  - Drug administered in wrong device [Unknown]

NARRATIVE: CASE EVENT DATE: 20210101
